FAERS Safety Report 8369486-4 (Version None)
Quarter: 2012Q2

REPORT INFORMATION
  Report Type: 
  Country: None (occurrence: None)
  Receive Date: 20120518
  Receipt Date: 20120511
  Transmission Date: 20120825
  Serious: Yes (Death, Other)
  Sender: FDA-Public Use
  Company Number: US-PFIZER INC-2012116840

PATIENT
  Sex: Female

DRUGS (1)
  1. REVATIO [Suspect]

REACTIONS (1)
  - DEATH [None]
